FAERS Safety Report 9382365 (Version 1)
Quarter: 2013Q3

REPORT INFORMATION
  Report Type: Report from Study
  Country: BR (occurrence: BR)
  Receive Date: 20130703
  Receipt Date: 20130703
  Transmission Date: 20140515
  Serious: Yes (Hospitalization)
  Sender: FDA-Public Use
  Company Number: PHHY2013BR069684

PATIENT
  Sex: Female
  Weight: 22 kg

DRUGS (3)
  1. EXJADE [Suspect]
     Indication: SICKLE CELL ANAEMIA
     Dosage: 500 MG, QD
     Route: 048
  2. MULTIVITAMIN//VITAMINS NOS [Concomitant]
     Dosage: UNK UKN, UNK
  3. HYDROXYUREA [Concomitant]
     Dosage: UNK UKN, UNK

REACTIONS (4)
  - Spleen disorder [Not Recovered/Not Resolved]
  - Wrong technique in drug usage process [Not Recovered/Not Resolved]
  - Nausea [Not Recovered/Not Resolved]
  - Serum ferritin increased [Not Recovered/Not Resolved]
